FAERS Safety Report 9159458 (Version 1)
Quarter: 2013Q1

REPORT INFORMATION
  Report Type: Spontaneous
  Country: US (occurrence: None)
  Receive Date: 20130312
  Receipt Date: 20130312
  Transmission Date: 20140127
  Serious: No
  Sender: FDA-Public Use
  Company Number: None

PATIENT
  Age: 38 Year
  Sex: Female

DRUGS (1)
  1. QSYMIA [Suspect]
     Indication: WEIGHT DECREASED
     Dosage: 1 DOSE QD INJ
     Route: 050
     Dates: start: 20130215, end: 20130308

REACTIONS (4)
  - Fatigue [None]
  - Abnormal dreams [None]
  - Nightmare [None]
  - Chest pain [None]
